FAERS Safety Report 18460332 (Version 1)
Quarter: 2020Q4

REPORT INFORMATION
  Report Type: Other
  Country: US (occurrence: US)
  Receive Date: 20201104
  Receipt Date: 20201104
  Transmission Date: 20210114
  Serious: Yes (Other)
  Sender: FDA-Public Use
  Company Number: US-ROCHE-2704188

PATIENT
  Age: 43 Year
  Sex: Male
  Weight: 83.99 kg

DRUGS (4)
  1. CHLORTHALIDONE. [Concomitant]
     Active Substance: CHLORTHALIDONE
     Dates: start: 202001
  2. TAMULOSIN [Concomitant]
     Active Substance: TAMSULOSIN
     Dates: start: 202001
  3. OCREVUS [Suspect]
     Active Substance: OCRELIZUMAB
     Indication: RELAPSING-REMITTING MULTIPLE SCLEROSIS
     Dosage: ON 08/MAY/2019, 11/SEP/2019, 29/OCT/2019, 14/APR/2020 AND 29/SEP/2020, OCRELIZUMAB OF AN UNKNOWN DOS
     Route: 042
     Dates: start: 20190424
  4. TAMULOSIN [Concomitant]
     Active Substance: TAMSULOSIN
     Dates: start: 2018

REACTIONS (4)
  - Nephrolithiasis [Recovered/Resolved]
  - Intentional product misuse [Unknown]
  - Sinusitis [Not Recovered/Not Resolved]
  - Off label use [Unknown]

NARRATIVE: CASE EVENT DATE: 202001
